FAERS Safety Report 6407440-X (Version None)
Quarter: 2009Q4

REPORT INFORMATION
  Report Type: 
  Country: None (occurrence: None)
  Receive Date: 20091020
  Receipt Date: 20091007
  Transmission Date: 20100525
  Serious: Yes (Hospitalization, Other)
  Sender: FDA-Public Use
  Company Number: AU-ASTRAZENECA-2009SE03710

PATIENT
  Age: 37 Year
  Sex: Female

DRUGS (4)
  1. ATACAND [Suspect]
     Indication: HYPERTENSION
     Route: 048
     Dates: start: 20020601, end: 20090626
  2. LEXAPRO [Concomitant]
     Indication: DEPRESSION
  3. ELEVIT [Concomitant]
     Indication: PREGNANCY
  4. INSULIN [Concomitant]
     Indication: GESTATIONAL DIABETES

REACTIONS (4)
  - DRUG EXPOSURE DURING PREGNANCY [None]
  - MULTIPLE DRUG OVERDOSE [None]
  - OVARIAN HYPERSTIMULATION SYNDROME [None]
  - STILLBIRTH [None]
